FAERS Safety Report 14805479 (Version 1)
Quarter: 2018Q2

REPORT INFORMATION
  Report Type: Spontaneous
  Country: US (occurrence: US)
  Receive Date: 20180417
  Receipt Date: 20180417
  Transmission Date: 20180711
  Serious: Yes (Life-Threatening, Hospitalization, Disabling, Other)
  Sender: FDA-Public Use
  Company Number: None

PATIENT
  Age: 48 Year
  Sex: Female
  Weight: 63 kg

DRUGS (3)
  1. OTEZLA [Suspect]
     Active Substance: APREMILAST
  2. MAGNESIUM [Concomitant]
     Active Substance: MAGNESIUM
  3. NITROGLYCERINE [Concomitant]
     Active Substance: NITROGLYCERIN

REACTIONS (3)
  - Muscle spasms [None]
  - Myocardial infarction [None]
  - Tremor [None]

NARRATIVE: CASE EVENT DATE: 20171021
